FAERS Safety Report 25377004 (Version 1)
Quarter: 2025Q2

REPORT INFORMATION
  Report Type: Report from Study
  Country: US (occurrence: US)
  Receive Date: 20250530
  Receipt Date: 20250530
  Transmission Date: 20250717
  Serious: Yes (Life-Threatening, Hospitalization, Other)
  Sender: ALEXION PHARMACEUTICALS
  Company Number: US-AstraZeneca-CH-00879669A

PATIENT
  Age: 73 Year

DRUGS (1)
  1. ULTOMIRIS [Suspect]
     Active Substance: RAVULIZUMAB-CWVZ
     Indication: Myasthenia gravis

REACTIONS (8)
  - Dyspnoea [Unknown]
  - Pneumonia [Unknown]
  - Influenza [Unknown]
  - Myasthenia gravis crisis [Unknown]
  - Oxygen saturation decreased [Unknown]
  - Pulmonary embolism [Unknown]
  - Aspiration [Unknown]
  - Vomiting [Unknown]
